FAERS Safety Report 15624371 (Version 1)
Quarter: 2018Q4

REPORT INFORMATION
  Report Type: Spontaneous
  Country: ES (occurrence: ES)
  Receive Date: 20181116
  Receipt Date: 20181116
  Transmission Date: 20190205
  Serious: Yes (Life-Threatening)
  Sender: FDA-Public Use
  Company Number: ES-TEVA-2018-ES-975209

PATIENT
  Age: 60 Year
  Sex: Female
  Weight: 78 kg

DRUGS (2)
  1. PACLITAXEL (2698A) [Suspect]
     Active Substance: PACLITAXEL
     Indication: NEOADJUVANT THERAPY
     Dosage: 80 MG/M2 DAILY;
     Route: 042
     Dates: start: 20171228, end: 20171228
  2. CARBOPLATINO (2323A) [Concomitant]
     Active Substance: CARBOPLATIN
     Indication: NEOADJUVANT THERAPY
     Route: 042
     Dates: start: 20171228, end: 20171228

REACTIONS (1)
  - Anaphylactic shock [Recovered/Resolved]

NARRATIVE: CASE EVENT DATE: 20171228
